FAERS Safety Report 16495884 (Version 7)
Quarter: 2020Q2

REPORT INFORMATION
  Report Type: Spontaneous
  Country: US (occurrence: US)
  Receive Date: 20190628
  Receipt Date: 20200416
  Transmission Date: 20200713
  Serious: Yes (Other)
  Sender: FDA-Public Use
  Company Number: US-PFIZER INC-2019277444

PATIENT
  Age: 70 Year
  Sex: Female

DRUGS (1)
  1. XELJANZ [Suspect]
     Active Substance: TOFACITINIB CITRATE
     Dosage: 5 MG, UNK

REACTIONS (10)
  - Respiratory tract infection viral [Recovering/Resolving]
  - Staphylococcal infection [Recovering/Resolving]
  - Dyspnoea [Recovering/Resolving]
  - Arthropod infestation [Unknown]
  - Coronavirus infection [Recovering/Resolving]
  - Drug hypersensitivity [Unknown]
  - Leukocytosis [Recovering/Resolving]
  - Nasopharyngitis [Unknown]
  - Malaise [Unknown]
  - Hypoacusis [Unknown]

NARRATIVE: CASE EVENT DATE: 2018
